FAERS Safety Report 25614742 (Version 1)
Quarter: 2025Q3

REPORT INFORMATION
  Report Type: Spontaneous
  Country: RU (occurrence: RU)
  Receive Date: 20250729
  Receipt Date: 20250729
  Transmission Date: 20251020
  Serious: Yes (Hospitalization, Other)
  Sender: CHEPLAPHARM
  Company Number: RU-ASTRAZENECA-202507EAF012404RU

PATIENT
  Age: 26 Year

DRUGS (2)
  1. QUETIAPINE [Suspect]
     Active Substance: QUETIAPINE
  2. TRAZODONE HYDROCHLORIDE [Concomitant]
     Active Substance: TRAZODONE HYDROCHLORIDE

REACTIONS (1)
  - Muscle spasms [Not Recovered/Not Resolved]
